FAERS Safety Report 7252428-2 (Version None)
Quarter: 2011Q1

REPORT INFORMATION
  Report Type: 
  Country: None (occurrence: None)
  Receive Date: 20110129
  Receipt Date: 20100105
  Transmission Date: 20110831
  Serious: No
  Sender: FDA-Public Use
  Company Number: US-ABBOTT-10P-163-0617775-00

PATIENT
  Sex: Female
  Weight: 62.652 kg

DRUGS (12)
  1. ZYPREXA [Concomitant]
     Indication: ANXIETY
  2. ALENDRONATE SODIUM [Concomitant]
     Indication: OSTEOPOROSIS
     Route: 048
  3. HYDROCORTISONE [Concomitant]
     Route: 048
  4. CLOBETASOL [Concomitant]
     Indication: PSORIASIS
     Dosage: APPLY FOR ONE WEEK, OFF FOR ONE WEEK
     Route: 061
  5. HUMIRA [Suspect]
     Indication: PSORIASIS
     Route: 058
     Dates: start: 20091001
  6. ZYPREXA [Concomitant]
     Indication: BIPOLAR DISORDER
     Route: 048
  7. HYDROCORTISONE [Concomitant]
     Indication: PRURITUS
     Route: 061
  8. METFORMIN [Concomitant]
     Indication: DIABETES MELLITUS
     Route: 048
     Dates: start: 20090901
  9. OMEPRAZOLE [Concomitant]
     Indication: GASTROOESOPHAGEAL REFLUX DISEASE
     Route: 048
  10. PRAVASTATIN [Concomitant]
     Indication: BLOOD CHOLESTEROL
     Route: 048
  11. EFFEXOR XR [Concomitant]
     Indication: BIPOLAR DISORDER
     Route: 048
  12. DECTICAL [Concomitant]
     Indication: PSORIASIS
     Route: 061

REACTIONS (3)
  - INJECTION SITE HAEMORRHAGE [None]
  - INJECTION SITE HAEMATOMA [None]
  - PAIN IN EXTREMITY [None]
